FAERS Safety Report 4406001-1 (Version None)
Quarter: 2004Q3

REPORT INFORMATION
  Report Type: 
  Country: None (occurrence: None)
  Receive Date: 20040723
  Receipt Date: 20040311
  Transmission Date: 20050211
  Serious: No
  Sender: FDA-Public Use
  Company Number: US-GLAXOSMITHKLINE-A0502349A

PATIENT
  Age: 57 Year
  Sex: Male

DRUGS (7)
  1. AVANDIA [Suspect]
     Dosage: 4MG PER DAY
     Route: 048
  2. NOVOLIN N [Concomitant]
  3. METOPROLOL [Concomitant]
  4. GLIPIZIDE [Concomitant]
  5. METFORMIN HCL [Concomitant]
  6. LOSARTAN POTASSIUM [Concomitant]
  7. SIMVASTATIN [Concomitant]

REACTIONS (1)
  - OEDEMA PERIPHERAL [None]
